FAERS Safety Report 15094654 (Version 1)
Quarter: 2018Q3

REPORT INFORMATION
  Report Type: Spontaneous
  Country: US (occurrence: US)
  Receive Date: 20180701
  Receipt Date: 20180701
  Transmission Date: 20181010
  Serious: No
  Sender: FDA-Public Use
  Company Number: US-JNJFOC-20180617806

PATIENT
  Age: 65 Year
  Sex: Male
  Weight: 61.24 kg

DRUGS (4)
  1. ZYRTEC [Suspect]
     Active Substance: CETIRIZINE HYDROCHLORIDE
     Indication: RASH
     Route: 065
     Dates: start: 20180523, end: 20180530
  2. CLARITIN [Concomitant]
     Active Substance: LORATADINE
     Indication: DERMATITIS ALLERGIC
     Route: 065
  3. DEXTRIN [Concomitant]
     Active Substance: ICODEXTRIN
     Indication: DERMATITIS ALLERGIC
     Route: 065
  4. ZYRTEC [Suspect]
     Active Substance: CETIRIZINE HYDROCHLORIDE
     Indication: SEASONAL ALLERGY
     Route: 065
     Dates: start: 20180523, end: 20180530

REACTIONS (3)
  - Product use in unapproved indication [Unknown]
  - Eye swelling [Not Recovered/Not Resolved]
  - Off label use [Unknown]

NARRATIVE: CASE EVENT DATE: 20180523
